FAERS Safety Report 5454127-6 (Version None)
Quarter: 2007Q3

REPORT INFORMATION
  Report Type: 
  Country: None (occurrence: None)
  Receive Date: 20070917
  Receipt Date: 20070905
  Transmission Date: 20080115
  Serious: Yes (Other)
  Sender: FDA-Public Use
  Company Number: US-ROCHE-513168

PATIENT
  Sex: Male
  Weight: 2.7 kg

DRUGS (5)
  1. SAQUINAVIR [Suspect]
     Indication: DRUG USE FOR UNKNOWN INDICATION
  2. RITONAVIR [Suspect]
     Indication: DRUG USE FOR UNKNOWN INDICATION
  3. 3TC [Suspect]
     Indication: DRUG USE FOR UNKNOWN INDICATION
  4. AZT [Suspect]
     Indication: DRUG USE FOR UNKNOWN INDICATION
  5. LOPINAVIR [Suspect]
     Indication: DRUG USE FOR UNKNOWN INDICATION

REACTIONS (2)
  - CEREBRAL VENTRICLE DILATATION [None]
  - HEPATOSPLENOMEGALY [None]
